FAERS Safety Report 8998344 (Version 3)
Quarter: 2013Q1

REPORT INFORMATION
  Report Type: Report from Study
  Country: CA (occurrence: CA)
  Receive Date: 20130105
  Receipt Date: 20130327
  Transmission Date: 20140127
  Serious: Yes (Other)
  Sender: FDA-Public Use
  Company Number: CA-JNJFOC-20130101297

PATIENT
  Age: 43 Year
  Sex: Female

DRUGS (7)
  1. SIMPONI [Suspect]
     Indication: RHEUMATOID ARTHRITIS
     Route: 058
     Dates: end: 20121110
  2. SIMPONI [Suspect]
     Indication: RHEUMATOID ARTHRITIS
     Route: 058
     Dates: start: 20121210
  3. SIMPONI [Suspect]
     Indication: RHEUMATOID ARTHRITIS
     Route: 058
     Dates: start: 20120710
  4. ARAVA [Concomitant]
  5. TRIDURAL [Concomitant]
     Route: 062
  6. LYRICA [Concomitant]
  7. T4 [Concomitant]

REACTIONS (4)
  - Livedo reticularis [Not Recovered/Not Resolved]
  - Local swelling [Not Recovered/Not Resolved]
  - Feeling hot [Not Recovered/Not Resolved]
  - Pain in extremity [Not Recovered/Not Resolved]
